FAERS Safety Report 9487167 (Version 1)
Quarter: 2013Q3

REPORT INFORMATION
  Report Type: Report from Study
  Country: JP (occurrence: JP)
  Receive Date: 20130829
  Receipt Date: 20130829
  Transmission Date: 20140515
  Serious: Yes (Hospitalization)
  Sender: FDA-Public Use
  Company Number: JP-ABBOTT-13P-087-1136971-00

PATIENT
  Age: 78 Year
  Sex: Female

DRUGS (24)
  1. HUMIRA [Suspect]
     Indication: RHEUMATOID ARTHRITIS
     Route: 058
     Dates: start: 20090917, end: 20120123
  2. SALAZOSULFAPYRIDINE [Concomitant]
     Indication: RHEUMATOID ARTHRITIS
     Dosage: 1000 MG DAILY
  3. ETODOLAC [Concomitant]
     Indication: RHEUMATOID ARTHRITIS
     Dosage: 400 MG DAILY
     Dates: end: 20120221
  4. OMEPRAZOLE [Concomitant]
     Indication: PRODUCT USED FOR UNKNOWN INDICATION
     Dosage: 20 MG DAILY
     Dates: end: 20120201
  5. ROSUVASTATIN CALCIUM [Concomitant]
     Indication: PRODUCT USED FOR UNKNOWN INDICATION
     Dosage: 2.5 MG DAILY
     Dates: end: 20120227
  6. ALENDRONATE SODIUM [Concomitant]
     Indication: PRODUCT USED FOR UNKNOWN INDICATION
     Dates: end: 20120201
  7. CALCIUM POLYSTYRENE SULFONATE [Concomitant]
     Indication: PRODUCT USED FOR UNKNOWN INDICATION
     Dosage: 75 GRAMS DAILY
     Dates: end: 20111030
  8. CALCIUM POLYSTYRENE SULFONATE [Concomitant]
     Dosage: 50 GRAMS DAILY
     Dates: start: 20111031, end: 20111211
  9. CALCIUM POLYSTYRENE SULFONATE [Concomitant]
     Dosage: 50 GRAMS DAILY
     Dates: start: 20120213
  10. FEXOFENADINE HYDROCHLORIDE [Concomitant]
     Indication: PRODUCT USED FOR UNKNOWN INDICATION
     Dosage: 120 MG DAILY
     Dates: start: 20100128, end: 20120201
  11. FERROUS FUMARATE [Concomitant]
     Indication: PRODUCT USED FOR UNKNOWN INDICATION
     Dosage: 305 MG DAILY
     Dates: start: 20091015, end: 20120227
  12. REBAMIPIDE [Concomitant]
     Indication: PRODUCT USED FOR UNKNOWN INDICATION
     Dosage: 300 MG DAILY
     Route: 048
     Dates: start: 20100225, end: 20120201
  13. IRBESARTAN [Concomitant]
     Indication: PRODUCT USED FOR UNKNOWN INDICATION
     Dosage: 25 MG DAILY
     Dates: start: 20110111, end: 20111106
  14. IRBESARTAN [Concomitant]
     Dosage: 50 MG DAILY
     Dates: start: 20111107, end: 20120206
  15. IRBESARTAN [Concomitant]
     Dosage: 100 MG DAILY
     Dates: start: 20120207, end: 20120227
  16. EPOETIN BETA PEGOL [Concomitant]
     Indication: PRODUCT USED FOR UNKNOWN INDICATION
     Dosage: 100 MG DAILY
     Dates: start: 20120123, end: 20120123
  17. EPOETIN ALFA [Concomitant]
     Indication: PRODUCT USED FOR UNKNOWN INDICATION
     Dates: start: 20111031, end: 20120123
  18. FUROSEMIDE [Concomitant]
     Indication: PRODUCT USED FOR UNKNOWN INDICATION
     Dosage: 20 MG DAILY
     Dates: start: 20120203, end: 20120205
  19. FUROSEMIDE [Concomitant]
     Dosage: 40 MG DAILY
     Dates: start: 20120206, end: 20120208
  20. FUROSEMIDE [Concomitant]
     Dosage: 20 MG DAILY
     Dates: start: 20120209, end: 20120215
  21. AMLODIPINE BESILATE [Concomitant]
     Indication: PRODUCT USED FOR UNKNOWN INDICATION
     Dosage: 5 MG DAILY
     Dates: start: 20120210, end: 20120216
  22. AMLODIPINE BESILATE [Concomitant]
     Dosage: 10 MG DAILY
     Dates: start: 20120217, end: 20120229
  23. ESTAZOLAM [Concomitant]
     Indication: PRODUCT USED FOR UNKNOWN INDICATION
     Dosage: 2 MG DAILY
     Dates: start: 20120214, end: 20120219
  24. ESTAZOLAM [Concomitant]
     Dosage: 4 MG DAILY
     Dates: start: 20120220, end: 20120227

REACTIONS (3)
  - Renal failure [Recovering/Resolving]
  - Sepsis [Recovered/Resolved]
  - Herpes zoster [Recovered/Resolved]
